FAERS Safety Report 5835267-6 (Version None)
Quarter: 2008Q3

REPORT INFORMATION
  Report Type: 
  Country: None (occurrence: None)
  Receive Date: 20080806
  Receipt Date: 20080729
  Transmission Date: 20090109
  Serious: Yes (Other)
  Sender: FDA-Public Use
  Company Number: GB-TEVA-175211ISR

PATIENT
  Sex: Female

DRUGS (1)
  1. PREDNISOLONE [Suspect]
     Indication: CROHN'S DISEASE

REACTIONS (3)
  - CONVULSION [None]
  - MALAISE [None]
  - VASCULITIS [None]
